FAERS Safety Report 8587645-2 (Version None)
Quarter: 2012Q3

REPORT INFORMATION
  Report Type: 
  Country: None (occurrence: None)
  Receive Date: 20120812
  Receipt Date: 20120809
  Transmission Date: 20120928
  Serious: Yes (Hospitalization)
  Sender: FDA-Public Use
  Company Number: SE-BRISTOL-MYERS SQUIBB COMPANY-16714321

PATIENT
  Age: 38 Year
  Sex: Female

DRUGS (7)
  1. DIKLOFENAK [Concomitant]
     Route: 054
     Dates: start: 20101001
  2. TERBUTALINE [Concomitant]
     Dosage: ORAL INHALATION
     Route: 055
     Dates: start: 20040310
  3. OMEPRAZOLE [Concomitant]
     Route: 048
     Dates: start: 20120614
  4. IPILIMUMAB [Suspect]
     Indication: MALIGNANT MELANOMA
     Dosage: 1 DF = 3 OR 10 MG/KG. NO OF COURSES: 1.
     Route: 042
     Dates: start: 20120522, end: 20120522
  5. BUDESONIDE [Concomitant]
     Dosage: ORAL INHALATION
     Route: 055
     Dates: start: 20040310
  6. BISOPROLOL FUMARATE [Concomitant]
     Route: 048
     Dates: start: 20120613
  7. PREDNISOLONE [Concomitant]
     Route: 048
     Dates: start: 20120613

REACTIONS (3)
  - EMBOLISM [None]
  - ABDOMINAL PAIN [None]
  - EYE PAIN [None]
